FAERS Safety Report 9505947 (Version 1)
Quarter: 2013Q1

REPORT INFORMATION
  Report Type: Spontaneous
  Country: US (occurrence: None)
  Receive Date: 20130305
  Receipt Date: 20130305
  Transmission Date: 20140127
  Serious: No
  Sender: FDA-Public Use
  Company Number: 1000040306

PATIENT
  Age: 72 Year
  Sex: Male

DRUGS (3)
  1. DALIRESP [Suspect]
     Indication: CHRONIC OBSTRUCTIVE PULMONARY DISEASE
     Route: 048
     Dates: start: 20121101
  2. ADVAIR (FLUTICASONE SALMETEROL) [Concomitant]
  3. SPIRIVA (TIOTROPIUM BROMIDE) [Concomitant]

REACTIONS (2)
  - Diarrhoea [None]
  - Insomnia [None]
